FAERS Safety Report 12473752 (Version 1)
Quarter: 2016Q2

REPORT INFORMATION
  Report Type: Report from Study
  Country: CA (occurrence: CA)
  Receive Date: 20160616
  Receipt Date: 20160616
  Transmission Date: 20160815
  Serious: Yes (Other)
  Sender: FDA-Public Use
  Company Number: CA-MYLANLABS-2016M1022385

PATIENT

DRUGS (5)
  1. GEN-CLOZAPINE [Suspect]
     Active Substance: CLOZAPINE
     Indication: PSYCHOTIC DISORDER
     Dosage: 200 MG, AM
     Route: 048
     Dates: start: 20101029, end: 201605
  2. GEN-CLOZAPINE [Suspect]
     Active Substance: CLOZAPINE
     Dosage: 300 MG, HS
     Route: 048
     Dates: start: 20101029, end: 201605
  3. ABILIFY [Concomitant]
     Active Substance: ARIPIPRAZOLE
     Dosage: 10 MG, AM
  4. INVEGA SUSTENNA [Concomitant]
     Active Substance: PALIPERIDONE PALMITATE
     Dosage: 150 MG, Q4WEEKS
  5. GEN-CLOZAPINE [Suspect]
     Active Substance: CLOZAPINE
     Dosage: 100 MG, BID
     Route: 048
     Dates: start: 201605, end: 201605

REACTIONS (2)
  - Breast cancer [Recovered/Resolved]
  - Granulocytopenia [Recovering/Resolving]

NARRATIVE: CASE EVENT DATE: 201502
